FAERS Safety Report 24890384 (Version 3)
Quarter: 2025Q1

REPORT INFORMATION
  Report Type: Spontaneous
  Country: US (occurrence: US)
  Receive Date: 20250127
  Receipt Date: 20250310
  Transmission Date: 20250408
  Serious: No
  Sender: TORRENT PHARMA INC.
  Company Number: US-TORRENT-00014187

PATIENT
  Age: 25 Year
  Sex: Male
  Weight: 79 kg

DRUGS (1)
  1. TIOPRONIN [Suspect]
     Active Substance: TIOPRONIN
     Indication: Cystinuria
     Dosage: TID (THREE TIMES A DAY)
     Route: 048
     Dates: start: 20250112, end: 20250124

REACTIONS (8)
  - Cystinuria [Recovered/Resolved]
  - Product dose omission issue [Unknown]
  - Inappropriate schedule of product administration [Unknown]
  - Diarrhoea [Unknown]
  - Decreased appetite [Unknown]
  - Fatigue [Unknown]
  - Renal pain [Unknown]
  - Urine abnormality [Unknown]

NARRATIVE: CASE EVENT DATE: 20250112
